FAERS Safety Report 7723417-6 (Version None)
Quarter: 2011Q3

REPORT INFORMATION
  Report Type: 
  Country: None (occurrence: None)
  Receive Date: 20110826
  Receipt Date: 20110811
  Transmission Date: 20111222
  Serious: Yes (Other)
  Sender: FDA-Public Use
  Company Number: DSU-2009-02913

PATIENT
  Age: 63 Year
  Sex: Female
  Weight: 71 kg

DRUGS (6)
  1. NORVASC [Suspect]
     Indication: HYPERTENSION
     Dosage: PER ORAL
     Route: 048
     Dates: start: 20090601
  2. LINSEED (LINUM USITATISSIMUM SEED) [Concomitant]
  3. ALPRAZOLAM [Concomitant]
  4. OLMETEC (OLMESARTAN MEDOXOMIL) (40 MILLIGRAM, TABLET) [Suspect]
     Indication: HYPERTENSION
     Dosage: 40 MG (40 MG, QD). PER ORAL
     Route: 048
     Dates: start: 20080101
  5. CLONAZEPAM [Concomitant]
  6. PRISTIQ [Suspect]
     Indication: DEPRESSION
     Dosage: 50 MG (50 MG, QD), PER ORAL
     Route: 048
     Dates: start: 20110201, end: 20110501

REACTIONS (6)
  - WEIGHT DECREASED [None]
  - ALOPECIA [None]
  - BLOOD PRESSURE INCREASED [None]
  - DEPRESSION [None]
  - ERYTHEMA [None]
  - COLD SWEAT [None]
